FAERS Safety Report 17433705 (Version 2)
Quarter: 2021Q1

REPORT INFORMATION
  Report Type: Spontaneous
  Country: US (occurrence: US)
  Receive Date: 20200219
  Receipt Date: 20210224
  Transmission Date: 20210419
  Serious: Yes (Hospitalization, Other)
  Sender: FDA-Public Use
  Company Number: US-SHIRE-US202006286

PATIENT
  Sex: Male

DRUGS (8)
  1. CINRYZE [Suspect]
     Active Substance: HUMAN C1-ESTERASE INHIBITOR
     Indication: HEREDITARY ANGIOEDEMA
     Dosage: 1500 INTERNATIONAL UNIT, OTHER(EVERY 3 DAYS)
     Route: 050
     Dates: start: 20140923
  2. CINRYZE [Suspect]
     Active Substance: HUMAN C1-ESTERASE INHIBITOR
     Indication: HEREDITARY ANGIOEDEMA
     Dosage: 1500 INTERNATIONAL UNIT, OTHER(EVERY 3 DAYS)
     Route: 050
     Dates: start: 20140923
  3. CINRYZE [Suspect]
     Active Substance: HUMAN C1-ESTERASE INHIBITOR
     Dosage: 1000 MICRO/4 DAYS
     Route: 058
     Dates: start: 20140923
  4. KALBITOR [Suspect]
     Active Substance: ECALLANTIDE
     Indication: HEREDITARY ANGIOEDEMA
     Dosage: 3 MILLILITER, AS REQ^D
     Route: 058
     Dates: start: 20130117
  5. KALBITOR [Suspect]
     Active Substance: ECALLANTIDE
     Dosage: 3 MILLILITER, AS REQ^D
     Route: 058
     Dates: start: 20130117
  6. CINRYZE [Suspect]
     Active Substance: HUMAN C1-ESTERASE INHIBITOR
     Dosage: 1000 MICRO/4 DAYS
     Route: 058
     Dates: start: 20140923
  7. CINRYZE [Suspect]
     Active Substance: HUMAN C1-ESTERASE INHIBITOR
     Indication: HEREDITARY ANGIOEDEMA
     Dosage: 1500 INTERNATIONAL UNIT, OTHER(EVERY 3 DAYS)
     Route: 050
     Dates: start: 20140923
  8. CINRYZE [Suspect]
     Active Substance: HUMAN C1-ESTERASE INHIBITOR
     Dosage: 1000 MICRO/4 DAYS
     Route: 058
     Dates: start: 20140923

REACTIONS (6)
  - Pneumonia [Unknown]
  - Epicondylitis [Not Recovered/Not Resolved]
  - Influenza [Recovered/Resolved]
  - Prescribed overdose [Unknown]
  - Device occlusion [Unknown]
  - Blood iron decreased [Unknown]
